FAERS Safety Report 19551575 (Version 1)
Quarter: 2021Q3

REPORT INFORMATION
  Report Type: Spontaneous
  Country: US (occurrence: US)
  Receive Date: 20210715
  Receipt Date: 20210715
  Transmission Date: 20211014
  Serious: No
  Sender: FDA-Public Use
  Company Number: US-ACCORD-196397

PATIENT
  Sex: Female
  Weight: 163.29 kg

DRUGS (4)
  1. FUROSEMIDE. [Concomitant]
     Active Substance: FUROSEMIDE
     Dosage: 40MG TABLET BY MOUTH ONCE A DAY
     Dates: start: 2018
  2. IBRANCE [Suspect]
     Active Substance: PALBOCICLIB
     Indication: NEOPLASM MALIGNANT
     Dosage: 125 MG CAPSULE BY MOUTH ONCE A DAY,SHE TOOK IT FOR TWENTY?ONE DAYS AND IS OFF FOR SEVEN DAYS.
  3. METOPROLOL. [Concomitant]
     Active Substance: METOPROLOL
     Indication: CARDIAC DISORDER
     Dosage: 50MG TABLET TWICE A DAY
     Dates: start: 2018
  4. LETROZOLE. [Suspect]
     Active Substance: LETROZOLE
     Indication: NEOPLASM MALIGNANT

REACTIONS (1)
  - Muscle disorder [Unknown]
